FAERS Safety Report 13245547 (Version 1)
Quarter: 2017Q1

REPORT INFORMATION
  Report Type: Report from Study
  Country: US (occurrence: US)
  Receive Date: 20170217
  Receipt Date: 20170217
  Transmission Date: 20170428
  Serious: Yes (Other)
  Sender: FDA-Public Use
  Company Number: US-ROCHE-1893640

PATIENT
  Age: 51 Year
  Sex: Female

DRUGS (6)
  1. SODIUM CHLORIDE. [Concomitant]
     Active Substance: SODIUM CHLORIDE
     Route: 065
  2. CATHFLO ACTIVASE [Suspect]
     Active Substance: ALTEPLASE
     Indication: CEREBRAL INFARCTION
     Dosage: SUBSEQUNT DOSE ON 23/JAN/2017
     Route: 042
     Dates: start: 20170105
  3. RITUXAN [Suspect]
     Active Substance: RITUXIMAB
     Indication: CHEMOTHERAPY
     Dosage: ONGOING;YES,SUBSEQUENT DOSE ON 12/DEC/2016, 03/JAN/2017 AND 23/JAN/2017
     Route: 042
     Dates: start: 20161121
  4. RITUXAN [Suspect]
     Active Substance: RITUXIMAB
     Route: 042
     Dates: start: 20170213
  5. CATHFLO ACTIVASE [Suspect]
     Active Substance: ALTEPLASE
     Indication: EMBOLISM ARTERIAL
     Dosage: ONGOING: YES
     Route: 042
     Dates: start: 20170213
  6. CATHFLO ACTIVASE [Suspect]
     Active Substance: ALTEPLASE
     Indication: EMBOLISM ARTERIAL

REACTIONS (3)
  - Embolic cerebral infarction [Unknown]
  - Cerebral infarction [Unknown]
  - Embolism arterial [Unknown]

NARRATIVE: CASE EVENT DATE: 20170213
